APPROVED DRUG PRODUCT: GENTACIDIN
Active Ingredient: GENTAMICIN SULFATE
Strength: EQ 0.3% BASE
Dosage Form/Route: OINTMENT;OPHTHALMIC
Application: A062501 | Product #001
Applicant: NOVARTIS PHARMACEUTICALS CORP
Approved: Jul 26, 1984 | RLD: No | RS: No | Type: DISCN